FAERS Safety Report 4505833-9 (Version None)
Quarter: 2004Q4

REPORT INFORMATION
  Report Type: 
  Country: None (occurrence: None)
  Receive Date: 20041025
  Receipt Date: 20040329
  Transmission Date: 20050328
  Serious: Yes (Hospitalization)
  Sender: FDA-Public Use
  Company Number: US-JNJFOC-20040305520

PATIENT
  Age: 71 Year
  Sex: Male
  Weight: 92.9874 kg

DRUGS (14)
  1. REMICADE [Suspect]
     Indication: RHEUMATOID ARTHRITIS
     Dosage: 4TH DOSE INTRAVENOUS; SEE IMAGE
     Dates: start: 20031211
  2. REMICADE [Suspect]
     Indication: RHEUMATOID ARTHRITIS
     Dosage: 4TH DOSE INTRAVENOUS; SEE IMAGE
     Dates: start: 20040211
  3. REMICADE [Suspect]
     Indication: RHEUMATOID ARTHRITIS
     Dosage: 4TH DOSE INTRAVENOUS; SEE IMAGE
     Dates: start: 20040325
  4. PREDNISONE [Concomitant]
  5. METHOTREXATE [Concomitant]
  6. AMITRIPTYLINE HCL [Concomitant]
  7. BUSPIRONE (BUSPIRONE) [Concomitant]
  8. LORAZEPAM [Concomitant]
  9. RISPERDAL [Concomitant]
  10. CELEBREX [Concomitant]
  11. NEXIUM [Concomitant]
  12. ACETYLSALICYLIC ACID SRT [Concomitant]
  13. CALCIUM (CALCIUM) [Concomitant]
  14. ACTINEL (CYPROHEPTADINE HYDROCHLORIDE) [Concomitant]

REACTIONS (1)
  - LOSS OF CONSCIOUSNESS [None]
